FAERS Safety Report 11697458 (Version 7)
Quarter: 2017Q1

REPORT INFORMATION
  Report Type: Spontaneous
  Country: US (occurrence: US)
  Receive Date: 20151104
  Receipt Date: 20170222
  Transmission Date: 20170428
  Serious: Yes (Hospitalization, Other)
  Sender: FDA-Public Use
  Company Number: US-PFIZER INC-2015349121

PATIENT
  Age: 61 Year
  Sex: Female
  Weight: 92 kg

DRUGS (6)
  1. IBRANCE [Suspect]
     Active Substance: PALBOCICLIB
     Indication: BREAST CANCER
     Dosage: UNK
  2. IBRANCE [Suspect]
     Active Substance: PALBOCICLIB
     Indication: BREAST CANCER METASTATIC
     Dosage: 125 MG, CYCLIC (DAY 1-21 Q 28 DAYS)
     Route: 048
     Dates: start: 20150925
  3. IBRANCE [Suspect]
     Active Substance: PALBOCICLIB
     Dosage: 125 MG, CYCLIC (DAY 1-21 Q 28 DAYS)
     Route: 048
     Dates: start: 20160830
  4. IBRANCE [Suspect]
     Active Substance: PALBOCICLIB
     Dosage: 125 MG, CYCLIC (DAY1-21 Q 28 DAYS)
     Route: 048
     Dates: start: 20160820
  5. IBRANCE [Suspect]
     Active Substance: PALBOCICLIB
     Dosage: 125 MG, CYCLIC (DAY1-21 Q 28 DAYS)
     Route: 048
     Dates: start: 20160830
  6. IBRANCE [Suspect]
     Active Substance: PALBOCICLIB
     Dosage: 125 MG, CYCLIC (DAY1-21 Q 28 DAYS)
     Route: 048
     Dates: start: 20160830

REACTIONS (27)
  - Stoma site haemorrhage [Unknown]
  - Pain in extremity [Unknown]
  - Hypoaesthesia [Unknown]
  - Abdominal pain upper [Not Recovered/Not Resolved]
  - Blood count abnormal [Unknown]
  - Urinary incontinence [Unknown]
  - Joint swelling [Unknown]
  - Excoriation [Unknown]
  - Fatigue [Unknown]
  - Renal failure [Unknown]
  - Abdominal pain upper [Unknown]
  - Pain [Unknown]
  - Muscle spasms [Not Recovered/Not Resolved]
  - Cough [Unknown]
  - Oxygen saturation decreased [Unknown]
  - Protein urine present [Unknown]
  - Paraesthesia [Unknown]
  - Nausea [Unknown]
  - Depression suicidal [Unknown]
  - Peripheral swelling [Unknown]
  - Dyspnoea [Unknown]
  - Alopecia [Unknown]
  - Urine output increased [Unknown]
  - Abdominal distension [Unknown]
  - Drug dose omission [Unknown]
  - Dehydration [Not Recovered/Not Resolved]
  - Gastrooesophageal reflux disease [Unknown]

NARRATIVE: CASE EVENT DATE: 20161229
